FAERS Safety Report 9860994 (Version 2)
Quarter: 2014Q1

REPORT INFORMATION
  Report Type: Spontaneous
  Country: US (occurrence: US)
  Receive Date: 20140202
  Receipt Date: 20140202
  Transmission Date: 20141002
  Serious: No
  Sender: FDA-Public Use
  Company Number: US-ALLERGAN-1302920US

PATIENT
  Age: 48 Year
  Sex: Female

DRUGS (7)
  1. BOTOX COSMETIC [Suspect]
     Indication: SKIN WRINKLING
     Dosage: 4 UNITS, SINGLE
     Route: 030
     Dates: start: 201302, end: 201302
  2. BOTOX COSMETIC [Suspect]
     Indication: SKIN WRINKLING
     Dosage: 3 UNITS, SINGLE
     Route: 030
     Dates: start: 20121203, end: 20121203
  3. BOTOX COSMETIC [Suspect]
     Dosage: 4 UNITS, SINGLE
     Route: 030
     Dates: start: 20121119, end: 20121119
  4. BOTOX COSMETIC [Suspect]
     Dosage: 24 UNITS, SINGLE
     Route: 030
     Dates: start: 201211, end: 201211
  5. BOTOX COSMETIC [Suspect]
     Dosage: 10 UNITS, SINGLE
     Route: 030
     Dates: start: 201205, end: 201205
  6. BOTOX COSMETIC [Suspect]
     Dosage: 25 UNITS, SINGLE
     Route: 030
     Dates: start: 201203, end: 201203
  7. ZOCOR [Concomitant]
     Indication: BLOOD CHOLESTEROL INCREASED
     Dosage: UNK UNK, QD
     Route: 048
     Dates: start: 2000

REACTIONS (8)
  - Upper respiratory tract infection [Not Recovered/Not Resolved]
  - Chest pain [Not Recovered/Not Resolved]
  - Sinus headache [Not Recovered/Not Resolved]
  - Cough [Not Recovered/Not Resolved]
  - Back pain [Not Recovered/Not Resolved]
  - Sinus congestion [Not Recovered/Not Resolved]
  - Rhinalgia [Not Recovered/Not Resolved]
  - Off label use [Unknown]
